FAERS Safety Report 6398685-6 (Version None)
Quarter: 2009Q4

REPORT INFORMATION
  Report Type: 
  Country: None (occurrence: None)
  Receive Date: 20091013
  Receipt Date: 20091001
  Transmission Date: 20100525
  Serious: Yes (Other)
  Sender: FDA-Public Use
  Company Number: JP-JNJFOC-20091001970

PATIENT
  Sex: Male
  Weight: 52 kg

DRUGS (23)
  1. REMICADE [Suspect]
     Route: 042
     Dates: start: 20070803, end: 20081028
  2. REMICADE [Suspect]
     Route: 042
     Dates: start: 20070803, end: 20081028
  3. REMICADE [Suspect]
     Route: 042
     Dates: start: 20070803, end: 20081028
  4. REMICADE [Suspect]
     Route: 042
     Dates: start: 20070803, end: 20081028
  5. REMICADE [Suspect]
     Route: 042
     Dates: start: 20070803, end: 20081028
  6. REMICADE [Suspect]
     Route: 042
     Dates: start: 20070803, end: 20081028
  7. REMICADE [Suspect]
     Route: 042
     Dates: start: 20070803, end: 20081028
  8. REMICADE [Suspect]
     Route: 042
     Dates: start: 20070803, end: 20081028
  9. REMICADE [Suspect]
     Route: 042
     Dates: start: 20070803, end: 20081028
  10. REMICADE [Suspect]
     Indication: BEHCET'S SYNDROME
     Route: 042
     Dates: start: 20070803, end: 20081028
  11. ADONA [Suspect]
     Indication: BEHCET'S SYNDROME
     Route: 048
  12. COLCHICINE [Concomitant]
     Indication: BEHCET'S SYNDROME
     Route: 048
  13. ISONIAZID [Concomitant]
     Route: 048
  14. ISONIAZID [Concomitant]
     Indication: ANTIBIOTIC PROPHYLAXIS
     Route: 048
  15. ANTIHISTAMINES [Concomitant]
     Indication: PROPHYLAXIS
  16. LOXOPROFEN [Concomitant]
     Indication: PROPHYLAXIS
     Route: 048
  17. RINDERON-A [Concomitant]
     Indication: BEHCET'S SYNDROME
  18. AZOPT [Concomitant]
     Indication: BEHCET'S SYNDROME
  19. ACETAZOLAMIDE [Concomitant]
     Indication: BEHCET'S SYNDROME
     Route: 048
  20. ASPARTATE POTASSIUM [Concomitant]
     Indication: BEHCET'S SYNDROME
     Route: 048
  21. TIMOLOL MALEATE [Concomitant]
     Indication: BEHCET'S SYNDROME
  22. HYPADIL [Concomitant]
     Indication: BEHCET'S SYNDROME
  23. ATROPINE [Concomitant]
     Indication: BEHCET'S SYNDROME

REACTIONS (1)
  - GLAUCOMA [None]
